FAERS Safety Report 8247357-1 (Version None)
Quarter: 2012Q1

REPORT INFORMATION
  Report Type: 
  Country: None (occurrence: None)
  Receive Date: 20120327
  Receipt Date: 20120316
  Transmission Date: 20120608
  Serious: Yes (Other)
  Sender: FDA-Public Use
  Company Number: AUR-APL-2012-01518

PATIENT
  Age: 32 Year
  Sex: Male

DRUGS (7)
  1. ARIPIPRAZOL (ARIPIPRAZOLE) [Concomitant]
  2. MIRTAZAPINE [Suspect]
     Indication: PRODUCT USED FOR UNKNOWN INDICATION
     Dosage: (15 MG,1 D),ORAL
     Route: 048
     Dates: start: 20101203, end: 20101205
  3. ARCOXIA [Concomitant]
  4. QUETIAPINE FUMARATE [Concomitant]
  5. METHOTREXATE [Concomitant]
  6. FOLSAEURE (FOLIC ACID) [Concomitant]
  7. VENLAFAXINE [Concomitant]

REACTIONS (1)
  - ECCHYMOSIS [None]
